FAERS Safety Report 14420418 (Version 3)
Quarter: 2018Q1

REPORT INFORMATION
  Report Type: Spontaneous
  Country: US (occurrence: US)
  Receive Date: 20180122
  Receipt Date: 20180205
  Transmission Date: 20180509
  Serious: Yes (Other)
  Sender: FDA-Public Use
  Company Number: US-ROCHE-1969831

PATIENT
  Age: 42 Year
  Sex: Female
  Weight: 74.91 kg

DRUGS (5)
  1. TYSABRI [Concomitant]
     Active Substance: NATALIZUMAB
  2. LEVOTHYROXIN [Concomitant]
     Active Substance: LEVOTHYROXINE
     Route: 065
  3. METHYLPREDNISOLONE. [Concomitant]
     Active Substance: METHYLPREDNISOLONE
     Dosage: UNKNOWN
     Route: 065
  4. RITUXAN [Suspect]
     Active Substance: RITUXIMAB
     Indication: MULTIPLE SCLEROSIS
     Dosage: RECEIVED PARTIAL UNKNOWN DOSE
     Route: 042
     Dates: start: 20170721, end: 20170721
  5. BENADRYL [Concomitant]
     Active Substance: DIPHENHYDRAMINE HYDROCHLORIDE
     Dosage: UNKNOWN
     Route: 065

REACTIONS (13)
  - Flushing [Unknown]
  - Throat tightness [Unknown]
  - Hypertension [Unknown]
  - Flatulence [Unknown]
  - Pharyngeal oedema [Not Recovered/Not Resolved]
  - Intentional product use issue [Unknown]
  - Rash [Unknown]
  - Urticaria [Unknown]
  - Fatigue [Unknown]
  - Constipation [Unknown]
  - Off label use [Unknown]
  - Change of bowel habit [Unknown]
  - Liver function test increased [Recovered/Resolved]

NARRATIVE: CASE EVENT DATE: 20170721
